FAERS Safety Report 19841076 (Version 1)
Quarter: 2021Q3

REPORT INFORMATION
  Report Type: Other
  Country: US (occurrence: US)
  Receive Date: 20210916
  Receipt Date: 20210916
  Transmission Date: 20211014
  Serious: No
  Sender: FDA-Public Use
  Company Number: US-LEADIANT BIOSCIENCES INC-2021STPI000014

PATIENT
  Sex: Female

DRUGS (6)
  1. BENADRYL [Concomitant]
     Active Substance: DIPHENHYDRAMINE HYDROCHLORIDE
  2. ONDANSETRON [Concomitant]
     Active Substance: ONDANSETRON
  3. CLOBETASOL [Concomitant]
     Active Substance: CLOBETASOL
  4. MATULANE [Suspect]
     Active Substance: PROCARBAZINE HYDROCHLORIDE
     Indication: BRAIN NEOPLASM MALIGNANT
     Dosage: 100 MILLIGRAM, QD FOR 14 DAYS  ON DAYS 8 TO 21 OF 6 WEEK CYCLE
     Route: 048
     Dates: start: 20201023
  5. METHIMAZOLE. [Concomitant]
     Active Substance: METHIMAZOLE
  6. LEVETIRACETAM. [Concomitant]
     Active Substance: LEVETIRACETAM

REACTIONS (1)
  - Nausea [Not Recovered/Not Resolved]
